FAERS Safety Report 25605091 (Version 1)
Quarter: 2025Q3

REPORT INFORMATION
  Report Type: Other
  Country: EU (occurrence: EU)
  Receive Date: 20250725
  Receipt Date: 20250725
  Transmission Date: 20251020
  Serious: Yes (Hospitalization)
  Sender: ZYDUS PHARM
  Company Number: None

PATIENT

DRUGS (20)
  1. ATORVASTATIN [Suspect]
     Active Substance: ATORVASTATIN
     Indication: Dyslipidaemia
     Route: 048
  2. LOPERAMIDE [Suspect]
     Active Substance: LOPERAMIDE
     Indication: Prophylaxis
     Route: 048
  3. ACETAMINOPHEN [Suspect]
     Active Substance: ACETAMINOPHEN
     Indication: Pain
     Route: 048
  4. POLYETHYLENE GLYCOLS [Suspect]
     Active Substance: POLYETHYLENE GLYCOLS
     Indication: Constipation
     Route: 048
     Dates: start: 20250620
  5. REPAGLINIDE [Suspect]
     Active Substance: REPAGLINIDE
     Indication: Insulin-requiring type 2 diabetes mellitus
     Route: 048
     Dates: end: 20250626
  6. SILDENAFIL [Suspect]
     Active Substance: SILDENAFIL
     Indication: Product used for unknown indication
     Route: 058
  7. PREDNISONE [Suspect]
     Active Substance: PREDNISONE
     Indication: Retinal detachment
     Route: 048
     Dates: start: 20250613, end: 20250618
  8. PREDNISONE [Suspect]
     Active Substance: PREDNISONE
     Route: 048
     Dates: start: 20250619, end: 20250620
  9. DIAMOX SEQUELS [Suspect]
     Active Substance: ACETAZOLAMIDE
     Indication: Product used for unknown indication
     Route: 048
     Dates: start: 20250619, end: 20250628
  10. DORZOLAMIDE [Suspect]
     Active Substance: DORZOLAMIDE
     Indication: Retinal detachment
     Route: 031
     Dates: start: 20250620, end: 20250622
  11. TIMOLOL [Suspect]
     Active Substance: TIMOLOL
     Indication: Retinal detachment
     Route: 031
     Dates: start: 20250620, end: 20250625
  12. ACUPAN [Suspect]
     Active Substance: NEFOPAM HYDROCHLORIDE
     Indication: Pain
     Route: 048
     Dates: start: 20250620, end: 20250622
  13. BRIMONIDINE [Suspect]
     Active Substance: BRIMONIDINE TARTRATE
     Indication: Retinal detachment
     Dates: start: 20250620, end: 20250620
  14. TROPICAMIDE [Suspect]
     Active Substance: TROPICAMIDE
     Indication: Retinal detachment
     Route: 031
     Dates: start: 20250621, end: 20250622
  15. DEXAMETHASONE SODIUM PHOSPHATE [Suspect]
     Active Substance: DEXAMETHASONE SODIUM PHOSPHATE
     Indication: Retinal detachment
     Dates: start: 20250621
  16. HUMALOG [Suspect]
     Active Substance: INSULIN LISPRO
     Indication: Insulin-requiring type 2 diabetes mellitus
     Route: 058
     Dates: start: 20250620
  17. MANNITOL [Suspect]
     Active Substance: MANNITOL
     Indication: Product used for unknown indication
     Route: 042
     Dates: start: 20250620, end: 20250620
  18. METFORMIN PAMOATE [Suspect]
     Active Substance: METFORMIN PAMOATE
     Indication: Insulin-requiring type 2 diabetes mellitus
     Route: 048
  19. INSULIN GLARGINE [Suspect]
     Active Substance: INSULIN GLARGINE
     Indication: Insulin-requiring type 2 diabetes mellitus
     Route: 058
  20. OZEMPIC [Suspect]
     Active Substance: SEMAGLUTIDE
     Indication: Insulin-requiring type 2 diabetes mellitus
     Route: 058

REACTIONS (1)
  - Ischaemic stroke [Recovered/Resolved]

NARRATIVE: CASE EVENT DATE: 20250621
